FAERS Safety Report 10945308 (Version 1)
Quarter: 2015Q1

REPORT INFORMATION
  Report Type: Spontaneous
  Country: US (occurrence: None)
  Receive Date: 20150319
  Receipt Date: 20150319
  Transmission Date: 20150721
  Serious: Yes (Life-Threatening)
  Sender: FDA-Public Use
  Company Number: COR_00263_2015

PATIENT

DRUGS (4)
  1. CARBOPLATIN. [Suspect]
     Active Substance: CARBOPLATIN
     Indication: NON-SMALL CELL LUNG CANCER STAGE III
     Dosage: ([ESCALATING DOSE ON DAY 2 OF CYCLE])
     Route: 042
  2. PACLITAXEL. [Suspect]
     Active Substance: PACLITAXEL
     Indication: NON-SMALL CELL LUNG CANCER STAGE III
     Dosage: ([ESCALATING DOSE ON DAY 2 OF CYCLE])
     Route: 042
  3. BORTEZOMIB [Suspect]
     Active Substance: BORTEZOMIB
     Indication: NON-SMALL CELL LUNG CANCER STAGE III
     Dosage: ESCALATING DOSE ON DAYS 1, 4, 8 AND 11 OF CYCLE
     Route: 042
  4. RADIATION [Suspect]
     Active Substance: RADIATION THERAPY
     Indication: NON-SMALL CELL LUNG CANCER STAGE III
     Dosage: 60 GY/30 DAILY FRACTIONS

REACTIONS (2)
  - Hypoxia [None]
  - Toxicity to various agents [None]
